FAERS Safety Report 9547615 (Version 1)
Quarter: 2013Q3

REPORT INFORMATION
  Report Type: Spontaneous
  Country: US (occurrence: US)
  Receive Date: 20130924
  Receipt Date: 20130924
  Transmission Date: 20140515
  Serious: Yes (Other)
  Sender: FDA-Public Use
  Company Number: US-AMGEN-USASP2013066076

PATIENT
  Age: 90 Year
  Sex: Female

DRUGS (4)
  1. PROLIA [Suspect]
     Indication: OSTEOPOROSIS POSTMENOPAUSAL
     Route: 065
  2. XANAX [Concomitant]
  3. RANITIDINE [Concomitant]
  4. FISH OIL [Concomitant]

REACTIONS (2)
  - Abasia [Unknown]
  - Bone pain [Unknown]
